FAERS Safety Report 5368472-6 (Version None)
Quarter: 2007Q2

REPORT INFORMATION
  Report Type: 
  Country: None (occurrence: None)
  Receive Date: 20070620
  Receipt Date: 20070607
  Transmission Date: 20071010
  Serious: No
  Sender: FDA-Public Use
  Company Number: 2007JP001962

PATIENT
  Age: 88 Year
  Sex: Male

DRUGS (10)
  1. VESICARE [Suspect]
     Dosage: 5 MG, UID/QD,ORAL
     Route: 048
     Dates: start: 20070224, end: 20070502
  2. HALCION [Suspect]
     Dosage: 25 MG, D, ORAL
     Route: 048
  3. GASTER D [Concomitant]
  4. NORVASC [Concomitant]
  5. MAGLAX (MAGNESIUM OXIDE) [Concomitant]
  6. LAC B (LACTOBACILLUS BIFIDUS, LYOPHILIZED) [Concomitant]
  7. MYA-BM (CLOSTRIDIUM BUTYRICUM) [Concomitant]
  8. DIGOXIN [Concomitant]
  9. MUCOSAL [Concomitant]
  10. MYSLEE (ZOLPIDE TARTRATE) [Concomitant]

REACTIONS (1)
  - HALLUCINATION [None]
